FAERS Safety Report 5563369-0 (Version None)
Quarter: 2007Q4

REPORT INFORMATION
  Report Type: 
  Country: None (occurrence: None)
  Receive Date: 20071217
  Receipt Date: 20070518
  Transmission Date: 20080405
  Serious: No
  Sender: FDA-Public Use
  Company Number: US-ASTRAZENECA-2005UW10050

PATIENT
  Age: 55 Year
  Sex: Male
  Weight: 94.3 kg

DRUGS (3)
  1. CRESTOR [Suspect]
     Indication: BLOOD CHOLESTEROL INCREASED
     Route: 048
     Dates: start: 20040101
  2. CARDIZEM LA [Concomitant]
  3. OMEGA 3 [Concomitant]

REACTIONS (4)
  - ASTHENIA [None]
  - CHEST DISCOMFORT [None]
  - DYSPNOEA [None]
  - ILL-DEFINED DISORDER [None]
